FAERS Safety Report 9131384 (Version 1)
Quarter: 2013Q1

REPORT INFORMATION
  Report Type: Report from Study
  Country: US (occurrence: US)
  Receive Date: 20130301
  Receipt Date: 20130301
  Transmission Date: 20140127
  Serious: No
  Sender: FDA-Public Use
  Company Number: US-MYLANLABS-2012S1003377

PATIENT
  Age: 38 Year
  Sex: Female

DRUGS (3)
  1. AMNESTEEM CAPSULES [Suspect]
     Indication: ACNE
     Route: 048
     Dates: start: 20100129, end: 20120103
  2. CLARAVIS [Suspect]
     Indication: ACNE
     Route: 048
  3. ABILIFY [Concomitant]
     Indication: DEPRESSION

REACTIONS (2)
  - Depression [Recovered/Resolved]
  - Blood triglycerides increased [Recovering/Resolving]
